FAERS Safety Report 12322748 (Version 2)
Quarter: 2016Q4

REPORT INFORMATION
  Report Type: Spontaneous
  Country: US (occurrence: US)
  Receive Date: 20160502
  Receipt Date: 20161214
  Transmission Date: 20170207
  Serious: No
  Sender: FDA-Public Use
  Company Number: US-PFIZER INC-2016238757

PATIENT
  Age: 52 Year
  Sex: Female

DRUGS (2)
  1. NAPROXEN. [Suspect]
     Active Substance: NAPROXEN
     Dosage: UNK
  2. IBUPROFEN. [Suspect]
     Active Substance: IBUPROFEN
     Dosage: UNK

REACTIONS (2)
  - Oedema [Unknown]
  - Drug hypersensitivity [Unknown]
